FAERS Safety Report 9224926 (Version 1)
Quarter: 2013Q1

REPORT INFORMATION
  Report Type: Spontaneous
  Country: US (occurrence: None)
  Receive Date: 20120914
  Receipt Date: 20120914
  Transmission Date: 20140127
  Serious: Yes (Other)
  Sender: FDA-Public Use
  Company Number: JPI-P-018333

PATIENT
  Age: 47 Year
  Sex: Female

DRUGS (1)
  1. XYREM(500 MILLIGRAM/MILLILITERS, SOLUTION)(SODIUM OXYBATE) [Suspect]
     Indication: CATAPLEXY
     Dosage: 4.5 GM
     Route: 048
     Dates: start: 20080904

REACTIONS (3)
  - Sleep apnoea syndrome [None]
  - Weight increased [None]
  - Electrocardiogram abnormal [None]
